FAERS Safety Report 6811082-1 (Version None)
Quarter: 2010Q2

REPORT INFORMATION
  Report Type: 
  Country: None (occurrence: None)
  Receive Date: 20100630
  Receipt Date: 20090616
  Transmission Date: 20101027
  Serious: No
  Sender: FDA-Public Use
  Company Number: US-PFIZER INC-2009197299

PATIENT
  Sex: Female
  Weight: 56.7 kg

DRUGS (3)
  1. ESTRING [Suspect]
     Indication: VULVOVAGINAL DISORDER
     Dosage: FREQUENCY: EVERY 3 MONTHS;
     Route: 067
     Dates: start: 20040101
  2. ESTRING [Suspect]
     Indication: URINARY TRACT INFECTION
  3. TAPAZOLE [Concomitant]
     Dosage: UNK

REACTIONS (5)
  - CHEST DISCOMFORT [None]
  - COUGH [None]
  - DRUG INEFFECTIVE [None]
  - DYSURIA [None]
  - GASTROOESOPHAGEAL REFLUX DISEASE [None]
